FAERS Safety Report 4410964-8 (Version None)
Quarter: 2004Q2

REPORT INFORMATION
  Report Type: 
  Country: None (occurrence: None)
  Receive Date: 20040630
  Receipt Date: 20040527
  Transmission Date: 20050107
  Serious: No
  Sender: FDA-Public Use
  Company Number: 04P-163-0259603-00

PATIENT
  Age: 73 Year
  Sex: Female
  Weight: 85.2762 kg

DRUGS (6)
  1. HUMIRA [Suspect]
     Indication: RHEUMATOID ARTHRITIS
     Dosage: 40 MG, 1 IN 2 WK, SUBCUTANEOUS
     Route: 058
     Dates: start: 20040401, end: 20040429
  2. METHOTREXATE [Concomitant]
  3. PREDNISONE [Concomitant]
  4. METILDIGOXIN [Concomitant]
  5. ESTROGEN NOS [Concomitant]
  6. PROPACET 100 [Concomitant]

REACTIONS (4)
  - INJECTION SITE ERYTHEMA [None]
  - NASOPHARYNGITIS [None]
  - PRURITUS GENITAL [None]
  - RASH MACULAR [None]
